FAERS Safety Report 22134222 (Version 1)
Quarter: 2023Q1

REPORT INFORMATION
  Report Type: Spontaneous
  Country: CA (occurrence: CA)
  Receive Date: 20230324
  Receipt Date: 20230324
  Transmission Date: 20230418
  Serious: Yes (Death)
  Sender: FDA-Public Use
  Company Number: CA-002147023-NVSC2023CA066758

PATIENT
  Age: 46 Year
  Sex: Male
  Weight: 121 kg

DRUGS (3)
  1. OXALIPLATIN [Suspect]
     Active Substance: OXALIPLATIN
     Indication: Oesophageal adenocarcinoma
     Dosage: 100 MG/M2, QD (1 EVERY 1 DAY)
     Route: 042
  2. IRINOTECAN [Suspect]
     Active Substance: IRINOTECAN
     Indication: Oesophageal adenocarcinoma
     Dosage: 160 MG/M2, QD (1 EVERY 1 DAY)
     Route: 042
  3. TIPIRACIL HYDROCHLORIDE [Suspect]
     Active Substance: TIPIRACIL HYDROCHLORIDE
     Indication: Oesophageal adenocarcinoma
     Dosage: 25 MG/M2, Q12H
     Route: 048

REACTIONS (1)
  - Cardiac arrest [Fatal]
